FAERS Safety Report 13352633 (Version 1)
Quarter: 2017Q1

REPORT INFORMATION
  Report Type: Spontaneous
  Country: US (occurrence: US)
  Receive Date: 20170320
  Receipt Date: 20170320
  Transmission Date: 20170429
  Serious: Yes (Other)
  Sender: FDA-Public Use
  Company Number: US-BAYER-2017-045755

PATIENT
  Sex: Female

DRUGS (2)
  1. ALKA-SELTZER PLUS COLD SPARKLING ORIGINAL [Suspect]
     Active Substance: ASPIRIN\CHLORPHENIRAMINE MALEATE\PHENYLEPHRINE BITARTRATE
     Dosage: UNK
     Route: 048
  2. ASPARTAME [Concomitant]
     Active Substance: ASPARTAME

REACTIONS (3)
  - Seizure [Unknown]
  - Adverse drug reaction [Unknown]
  - Abnormal behaviour [Unknown]
